FAERS Safety Report 16737187 (Version 1)
Quarter: 2019Q3

REPORT INFORMATION
  Report Type: Spontaneous
  Country: GB (occurrence: GB)
  Receive Date: 20190823
  Receipt Date: 20190823
  Transmission Date: 20191005
  Serious: Yes (Other)
  Sender: FDA-Public Use
  Company Number: GB-TEVA-2019-GB-1095638

PATIENT
  Age: 55 Year
  Sex: Female
  Weight: 92 kg

DRUGS (17)
  1. SALBUTAMOL [Concomitant]
     Active Substance: ALBUTEROL
     Dates: start: 20180627
  2. BENDROFLUMETHIAZIDE [Concomitant]
     Active Substance: BENDROFLUMETHIAZIDE
     Dosage: EACH MORNING
     Dates: start: 20181224
  3. BACLOFEN. [Concomitant]
     Active Substance: BACLOFEN
     Dosage: ONE THREE TIMES A DAY AND 20 MG AT NIGHT BY CON...
     Dates: start: 20181224
  4. DOSULEPIN HYDROCHLORIDE [Concomitant]
     Active Substance: DOTHIEPIN HYDROCHLORIDE
     Dosage: AT NIGHT
     Dates: start: 20181224
  5. SERTRALINE [Concomitant]
     Active Substance: SERTRALINE HYDROCHLORIDE
     Dates: start: 20181219
  6. GAVISCON ADVANCE [Concomitant]
     Active Substance: POTASSIUM BICARBONATE\SODIUM ALGINATE
     Dosage: THREE TIMES A DAY
     Dates: start: 20181219
  7. NEDOCROMIL SODIUM. [Concomitant]
     Active Substance: NEDOCROMIL SODIUM
     Dates: start: 20180627
  8. AMOXICILLIN. [Concomitant]
     Active Substance: AMOXICILLIN
     Dates: start: 20190502, end: 20190507
  9. PSEUDOEPHEDRINE. [Concomitant]
     Active Substance: PSEUDOEPHEDRINE HYDROCHLORIDE
     Dosage: EVERY 4-6 HOURS.
     Dates: start: 20180627
  10. COCODAMOL [Concomitant]
     Active Substance: ACETAMINOPHEN\CODEINE PHOSPHATE
     Dosage: 1 OR 2 UP TO FOUR TIMES A DAY WHEN REQUIRED FOR...
     Dates: start: 20181224
  11. LOSARTAN. [Concomitant]
     Active Substance: LOSARTAN
     Dates: start: 20190715
  12. OXYBUTYNIN. [Concomitant]
     Active Substance: OXYBUTYNIN CHLORIDE
     Dates: start: 20180627
  13. LISINOPRIL. [Suspect]
     Active Substance: LISINOPRIL
     Dosage: AT NIGHT
     Route: 065
     Dates: start: 20181219, end: 20190710
  14. AMLODIPINE [Concomitant]
     Active Substance: AMLODIPINE BESYLATE
     Dates: start: 20181219
  15. FLUTICASONE. [Concomitant]
     Active Substance: FLUTICASONE
     Dosage: PUFFS.
     Dates: start: 20180627
  16. GABAPENTIN. [Concomitant]
     Active Substance: GABAPENTIN
     Dates: start: 20181219
  17. ATORVASTATIN [Concomitant]
     Active Substance: ATORVASTATIN
     Dosage: AT NIGHT
     Dates: start: 20181219

REACTIONS (2)
  - Swelling face [Unknown]
  - Mouth swelling [Unknown]

NARRATIVE: CASE EVENT DATE: 20190718
